FAERS Safety Report 14039192 (Version 2)
Quarter: 2017Q4

REPORT INFORMATION
  Report Type: Spontaneous
  Country: US (occurrence: US)
  Receive Date: 20171004
  Receipt Date: 20171016
  Transmission Date: 20180321
  Serious: Yes (Hospitalization)
  Sender: FDA-Public Use
  Company Number: US-AMGEN-USASP2017147169

PATIENT
  Age: 73 Year
  Sex: Female

DRUGS (8)
  1. COQ10 [Concomitant]
     Active Substance: UBIDECARENONE
  2. PROLIA [Suspect]
     Active Substance: DENOSUMAB
     Indication: OSTEOPOROSIS POSTMENOPAUSAL
     Dosage: UNK
     Route: 065
  3. MAGNESIUM [Concomitant]
     Active Substance: MAGNESIUM
  4. RESVERATROL [Concomitant]
     Active Substance: DIETARY SUPPLEMENT\RESVERATROL
  5. VITAMIN D [Concomitant]
     Active Substance: CHOLECALCIFEROL
  6. PROBIOTIC [Concomitant]
     Active Substance: PROBIOTICS NOS
  7. LIPITOR [Concomitant]
     Active Substance: ATORVASTATIN CALCIUM
     Dosage: 5 MG, UNK
  8. CALCIUM [Concomitant]
     Active Substance: CALCIUM

REACTIONS (6)
  - Infection [Recovering/Resolving]
  - Anxiety [Unknown]
  - Chills [Unknown]
  - Tremor [Unknown]
  - Vomiting [Unknown]
  - Stress [Unknown]

NARRATIVE: CASE EVENT DATE: 201709
